FAERS Safety Report 9989222 (Version 1)
Quarter: 2013Q4

REPORT INFORMATION
  Report Type: Spontaneous
  Country: US (occurrence: None)
  Receive Date: 20131023
  Receipt Date: 20131023
  Transmission Date: 20140711
  Serious: Yes (Hospitalization)
  Sender: FDA-Public Use
  Company Number: 2013P1020040

PATIENT
  Age: 41 Year
  Sex: Male

DRUGS (1)
  1. ACTIMMUNE [Suspect]
     Route: 058
     Dates: start: 20130709, end: 20130709

REACTIONS (2)
  - Loss of consciousness [None]
  - Craniocerebral injury [None]
